FAERS Safety Report 7503779-5 (Version None)
Quarter: 2011Q2

REPORT INFORMATION
  Report Type: 
  Country: None (occurrence: None)
  Receive Date: 20110518
  Receipt Date: 20110503
  Transmission Date: 20111010
  Serious: Yes (Death)
  Sender: FDA-Public Use
  Company Number: FK201100954

PATIENT
  Age: 50 Year
  Sex: Male

DRUGS (6)
  1. VINCRISTINE [Suspect]
     Indication: SPLENIC MARGINAL ZONE LYMPHOMA
  2. CYCLOPHOSPHAMIDE [Suspect]
     Indication: SPLENIC MARGINAL ZONE LYMPHOMA
  3. LAMIVUDINE (LAMIVUDINE) (LAMIVUDINE) [Concomitant]
  4. DOXORUBICIN HYDROCHLORIDE [Suspect]
     Indication: SPLENIC MARGINAL ZONE LYMPHOMA
  5. PREDNISONE [Suspect]
     Indication: SPLENIC MARGINAL ZONE LYMPHOMA
  6. RITUXIMAB (RITUXIMAB) (RITUXIMAB) [Suspect]
     Indication: SPLENIC MARGINAL ZONE LYMPHOMA

REACTIONS (3)
  - MULTI-ORGAN FAILURE [None]
  - HEPATITIS B [None]
  - HEPATIC ENCEPHALOPATHY [None]
